FAERS Safety Report 7455602-5 (Version None)
Quarter: 2011Q2

REPORT INFORMATION
  Report Type: 
  Country: None (occurrence: None)
  Receive Date: 20110503
  Receipt Date: 20110421
  Transmission Date: 20111010
  Serious: Yes (Death)
  Sender: FDA-Public Use
  Company Number: DE-ROCHE-773879

PATIENT
  Sex: Female
  Weight: 54 kg

DRUGS (2)
  1. TAXOTERE [Concomitant]
     Dates: start: 20100905, end: 20101031
  2. BEVACIZUMAB [Suspect]
     Route: 065
     Dates: start: 20100905, end: 20101123

REACTIONS (2)
  - NEOPLASM MALIGNANT [None]
  - NO THERAPEUTIC RESPONSE [None]
